FAERS Safety Report 7130956-8 (Version None)
Quarter: 2010Q4

REPORT INFORMATION
  Report Type: 
  Country: None (occurrence: None)
  Receive Date: 20101201
  Receipt Date: 20101119
  Transmission Date: 20110411
  Serious: Yes (Hospitalization)
  Sender: FDA-Public Use
  Company Number: A0804173A

PATIENT
  Age: 50 Year
  Sex: Female

DRUGS (1)
  1. AVANDAMET [Suspect]
     Route: 065
     Dates: start: 20040101

REACTIONS (1)
  - MYOCARDIAL INFARCTION [None]
